FAERS Safety Report 10026087 (Version 1)
Quarter: 2014Q1

REPORT INFORMATION
  Report Type: Report from Study
  Country: US (occurrence: US)
  Receive Date: 20140320
  Receipt Date: 20140320
  Transmission Date: 20141002
  Serious: Yes (Life-Threatening, Hospitalization)
  Sender: FDA-Public Use
  Company Number: US-US-EMD SERONO, INC.-7276442

PATIENT
  Sex: Female
  Weight: 61 kg

DRUGS (3)
  1. REBIF [Suspect]
     Indication: MULTIPLE SCLEROSIS
     Route: 058
     Dates: start: 2002
  2. REBIF [Suspect]
     Route: 058
     Dates: start: 20120730, end: 201310
  3. ADVIL                              /00109201/ [Concomitant]
     Indication: PRODUCT USED FOR UNKNOWN INDICATION

REACTIONS (13)
  - Encephalitis [Recovering/Resolving]
  - Coma [Recovered/Resolved]
  - Feeling abnormal [Unknown]
  - Unresponsive to stimuli [Unknown]
  - Body temperature increased [Unknown]
  - Convulsion [Recovering/Resolving]
  - Heart rate irregular [Unknown]
  - Alopecia [Not Recovered/Not Resolved]
  - Dizziness [Unknown]
  - Stress [Not Recovered/Not Resolved]
  - Multiple sclerosis relapse [Not Recovered/Not Resolved]
  - Malaise [Unknown]
  - Depression [Not Recovered/Not Resolved]
